FAERS Safety Report 23254696 (Version 1)
Quarter: 2023Q4

REPORT INFORMATION
  Report Type: Spontaneous
  Country: PT (occurrence: PT)
  Receive Date: 20231203
  Receipt Date: 20231203
  Transmission Date: 20240110
  Serious: Yes (Death, Hospitalization, Other)
  Sender: FDA-Public Use
  Company Number: PT-GLAXOSMITHKLINE-PT2023GSK160979

PATIENT
  Age: 87 Year
  Sex: Female

DRUGS (2)
  1. ASPIRIN [Suspect]
     Active Substance: ASPIRIN
     Indication: Product used for unknown indication
     Dosage: UNK
     Route: 065
  2. LOSARTAN [Suspect]
     Active Substance: LOSARTAN
     Indication: Product used for unknown indication
     Dosage: UNK
     Route: 065

REACTIONS (12)
  - Death [Fatal]
  - Epilepsy [Unknown]
  - Inappropriate antidiuretic hormone secretion [Unknown]
  - Neoplasm malignant [Unknown]
  - Leukoencephalopathy [Unknown]
  - Skin lesion [Unknown]
  - Lymphadenopathy [Unknown]
  - Slow response to stimuli [Unknown]
  - Disorientation [Unknown]
  - Incision site ulcer [Unknown]
  - Mental status changes [Unknown]
  - Gait disturbance [Unknown]
